FAERS Safety Report 20341379 (Version 1)
Quarter: 2022Q1

REPORT INFORMATION
  Report Type: Spontaneous
  Country: CN (occurrence: CN)
  Receive Date: 20220117
  Receipt Date: 20220117
  Transmission Date: 20220424
  Serious: Yes (Other)
  Sender: FDA-Public Use
  Company Number: CN-ORGANON-O2201CHN000739

PATIENT
  Age: 75 Year
  Sex: Male
  Weight: 50 kg

DRUGS (2)
  1. DIPROSPAN [Suspect]
     Active Substance: BETAMETHASONE DIPROPIONATE\BETAMETHASONE SODIUM PHOSPHATE
     Indication: Dermatitis
     Dosage: 5 MG, QD
     Route: 030
     Dates: start: 20211228, end: 20211228
  2. TRANSFER FACTOR [Concomitant]
     Indication: Dermatitis
     Dosage: 6MG (6 MG: 200 ?G), Q7D
     Route: 058
     Dates: start: 20211228, end: 20211228

REACTIONS (2)
  - Blood pressure decreased [Recovering/Resolving]
  - Shock symptom [Recovering/Resolving]

NARRATIVE: CASE EVENT DATE: 20211228
